FAERS Safety Report 6841500-4 (Version None)
Quarter: 2010Q3

REPORT INFORMATION
  Report Type: 
  Country: None (occurrence: None)
  Receive Date: 20100714
  Receipt Date: 20100705
  Transmission Date: 20110219
  Serious: Yes (Other)
  Sender: FDA-Public Use
  Company Number: NL-ABBOTT-10P-114-0655102-00

PATIENT
  Sex: Male
  Weight: 95 kg

DRUGS (6)
  1. LUCRIN DEPOT 11.25 MG [Suspect]
     Indication: PROSTATE CANCER
     Route: 058
     Dates: start: 20080701
  2. ROSUVASTATIN [Concomitant]
     Indication: BLOOD CHOLESTEROL INCREASED
     Route: 048
     Dates: start: 20020101
  3. TELMISARTAN AND HYDROCHLOROTHIAZIDE [Concomitant]
     Indication: HYPERTENSION
     Dosage: 80/12.5MG
     Route: 048
     Dates: start: 20020101
  4. METOPROLOL SUCCINATE [Concomitant]
     Indication: HYPERTENSION
     Route: 048
     Dates: start: 20020101
  5. NAPROXEN [Concomitant]
     Indication: MICTURITION DISORDER
     Route: 065
     Dates: end: 20080701
  6. TRAMADOL [Concomitant]
     Indication: MICTURITION DISORDER
     Route: 065
     Dates: end: 20080701

REACTIONS (9)
  - ALOPECIA [None]
  - HAIR GROWTH ABNORMAL [None]
  - HOT FLUSH [None]
  - HYPERHIDROSIS [None]
  - INGUINAL HERNIA [None]
  - LIBIDO DECREASED [None]
  - NOCTURIA [None]
  - PARAESTHESIA [None]
  - PERIPHERAL COLDNESS [None]
